FAERS Safety Report 22652379 (Version 1)
Quarter: 2023Q2

REPORT INFORMATION
  Report Type: Spontaneous
  Country: US (occurrence: US)
  Receive Date: 20230628
  Receipt Date: 20230628
  Transmission Date: 20230722
  Serious: No
  Sender: FDA-Public Use
  Company Number: US-ASTELLAS-2023US001328

PATIENT
  Age: 78 Year
  Sex: Male

DRUGS (2)
  1. PADCEV [Suspect]
     Active Substance: ENFORTUMAB VEDOTIN-EJFV
     Indication: Bladder cancer
     Dosage: 110 MG, CYCLIC (DAY 1, 8, AND 15 EVERY 28 DAYS)
     Route: 042
     Dates: start: 20221212
  2. PADCEV [Suspect]
     Active Substance: ENFORTUMAB VEDOTIN-EJFV
     Dosage: 110 MG, CYCLIC (DAY 1, 8, AND 15 EVERY 28 DAYS)
     Route: 042
     Dates: start: 20230109

REACTIONS (1)
  - Product storage error [Unknown]

NARRATIVE: CASE EVENT DATE: 20230104
